FAERS Safety Report 7745488-3 (Version None)
Quarter: 2011Q3

REPORT INFORMATION
  Report Type: 
  Country: None (occurrence: None)
  Receive Date: 20110913
  Receipt Date: 20100521
  Transmission Date: 20111222
  Serious: No
  Sender: FDA-Public Use
  Company Number: US-BAYER-201024199NA

PATIENT
  Age: 31 Year
  Sex: Female

DRUGS (2)
  1. MIRENA [Suspect]
     Indication: CONTRACEPTION
     Dosage: UNK
     Dates: start: 20080616
  2. AMOXICILLIN [Concomitant]
     Indication: ENDODONTIC PROCEDURE
     Dosage: UNK
     Dates: start: 20100518

REACTIONS (2)
  - VAGINAL HAEMORRHAGE [None]
  - AMENORRHOEA [None]
